FAERS Safety Report 5075324-8 (Version None)
Quarter: 2006Q3

REPORT INFORMATION
  Report Type: 
  Country: None (occurrence: None)
  Receive Date: 20060804
  Receipt Date: 20060724
  Transmission Date: 20061208
  Serious: Yes (Hospitalization)
  Sender: FDA-Public Use
  Company Number: 2006091100

PATIENT
  Age: 51 Year
  Sex: Female

DRUGS (10)
  1. LINEZOLID [Suspect]
     Indication: FUNGAL INFECTION
     Dosage: 1200 MG (600 MG, 2 IN 1 D), ORAL
     Route: 048
     Dates: start: 20060518, end: 20060608
  2. PREVISCAN (FLUINDIONE) [Suspect]
     Indication: DRUG USE FOR UNKNOWN INDICATION
     Dosage: 20 MG (1 IN 1), ORAL
     Route: 048
     Dates: end: 20060611
  3. RILMENIDINE (RILMENIDINE) [Concomitant]
  4. NICARDIPINE (NICARDIPINE) [Concomitant]
  5. FUROSEMIDE [Concomitant]
  6. ZINC GLUCONATE (ZINC GLUCONATE) [Concomitant]
  7. PERINDOPRIL ERBUMINE [Concomitant]
  8. HYDROXYZINE HCL [Concomitant]
  9. INSULIN HUMAN (INSULIN HUMAN) [Concomitant]
  10. ADRAFINIL (ADRAFINIL) [Concomitant]

REACTIONS (3)
  - ANAEMIA [None]
  - INTERNATIONAL NORMALISED RATIO INCREASED [None]
  - PROTHROMBIN LEVEL DECREASED [None]
